FAERS Safety Report 6676950-2 (Version None)
Quarter: 2010Q2

REPORT INFORMATION
  Report Type: 
  Country: None (occurrence: None)
  Receive Date: 20100412
  Receipt Date: 20100406
  Transmission Date: 20101027
  Serious: Yes (Death)
  Sender: FDA-Public Use
  Company Number: JP-JNJFOC-20100400633

PATIENT
  Age: 52 Year
  Sex: Female

DRUGS (8)
  1. RISPERDAL CONSTA [Suspect]
     Indication: SCHIZOPHRENIA
     Route: 030
  2. RISPERIDONE [Suspect]
     Indication: SCHIZOPHRENIA
     Route: 048
  3. SULPIRIDE [Concomitant]
     Route: 048
  4. SORENTMIN [Concomitant]
     Route: 048
  5. ROHYPNOL [Concomitant]
     Route: 048
  6. PREDONINE [Concomitant]
     Route: 048
  7. RADEN [Concomitant]
     Route: 048
  8. MAGMITT [Concomitant]
     Route: 048

REACTIONS (1)
  - SYSTEMIC LUPUS ERYTHEMATOSUS [None]
